FAERS Safety Report 5852029-4 (Version None)
Quarter: 2008Q3

REPORT INFORMATION
  Report Type: 
  Country: None (occurrence: None)
  Receive Date: 20080820
  Receipt Date: 20080808
  Transmission Date: 20090109
  Serious: Yes (Hospitalization)
  Sender: FDA-Public Use
  Company Number: JP-PFIZER INC-2008068215

PATIENT
  Age: 58 Year
  Sex: Male

DRUGS (7)
  1. CAMPTOSAR [Suspect]
     Indication: RECTAL CANCER
     Route: 042
     Dates: start: 20080526, end: 20080709
  2. CALCIUM FOLINATE [Suspect]
     Indication: RECTAL CANCER
     Route: 042
     Dates: start: 20080404, end: 20080512
  3. CALCIUM FOLINATE [Suspect]
     Route: 042
     Dates: start: 20080526, end: 20080709
  4. FLUOROURACIL [Suspect]
     Indication: RECTAL CANCER
     Dates: start: 20080404, end: 20080512
  5. FLUOROURACIL [Suspect]
     Dosage: FREQ:IV BOLUS/IV
     Dates: start: 20080526, end: 20080709
  6. BEVACIZUMAB [Suspect]
     Indication: RECTAL CANCER
     Route: 042
     Dates: start: 20080404, end: 20080512
  7. BEVACIZUMAB [Suspect]
     Route: 042
     Dates: start: 20080526, end: 20080709

REACTIONS (2)
  - NECROTISING FASCIITIS [None]
  - SEPSIS [None]
